FAERS Safety Report 4466702-6 (Version None)
Quarter: 2004Q4

REPORT INFORMATION
  Report Type: 
  Country: None (occurrence: None)
  Receive Date: 20041001
  Receipt Date: 20041001
  Transmission Date: 20050328
  Serious: Yes (Life-Threatening)
  Sender: FDA-Public Use
  Company Number: None

PATIENT
  Sex: Female
  Weight: 70.3075 kg

DRUGS (4)
  1. VIOXX [Suspect]
     Indication: OSTEOARTHRITIS
     Dosage: 50 MG ONCE DAILY ORAL
     Route: 048
     Dates: start: 20030801, end: 20040913
  2. VIOXX [Suspect]
     Indication: RHEUMATOID ARTHRITIS
     Dosage: 50 MG ONCE DAILY ORAL
     Route: 048
     Dates: start: 20030801, end: 20040913
  3. ARAVA [Concomitant]
  4. ATENOLOL [Concomitant]

REACTIONS (14)
  - ANXIETY [None]
  - BURNING SENSATION [None]
  - CARDIAC DISORDER [None]
  - CHEST DISCOMFORT [None]
  - CHEST PAIN [None]
  - DIZZINESS [None]
  - GASTRITIS [None]
  - GASTROINTESTINAL DISORDER [None]
  - GASTROOESOPHAGEAL REFLUX DISEASE [None]
  - HEADACHE [None]
  - NAUSEA [None]
  - NECK PAIN [None]
  - OESOPHAGITIS [None]
  - PARAESTHESIA [None]
